FAERS Safety Report 7794213-9 (Version None)
Quarter: 2011Q4

REPORT INFORMATION
  Report Type: 
  Country: None (occurrence: None)
  Receive Date: 20111004
  Receipt Date: 20101015
  Transmission Date: 20120403
  Serious: No
  Sender: FDA-Public Use
  Company Number: US-VIIV HEALTHCARE LIMITED-A0887115A

PATIENT
  Sex: Male

DRUGS (3)
  1. SELZENTRY [Suspect]
     Indication: HIV INFECTION
     Route: 048
     Dates: start: 20100601
  2. RALTEGRAVIR [Concomitant]
  3. ETRAVIRINE [Concomitant]

REACTIONS (1)
  - RENAL IMPAIRMENT [None]
